FAERS Safety Report 5772229 (Version 3)
Quarter: 2013Q2

REPORT INFORMATION
  Report Type: Report from Study
  Country: DE (occurrence: DE)
  Receive Date: 20050408
  Receipt Date: 20130531
  Transmission Date: 20140414
  Serious: Yes (Hospitalization)
  Sender: FDA-Public Use
  Company Number: DE-JNJFOC-20050307043

PATIENT
  Age: 30 Year
  Sex: Female
  Weight: 48 kg

DRUGS (9)
  1. INFLIXIMAB [Suspect]
     Indication: CROHN^S DISEASE
     Route: 042
     Dates: start: 20050222, end: 20050222
  2. INFLIXIMAB [Suspect]
     Indication: CROHN^S DISEASE
     Route: 042
     Dates: start: 20050308, end: 20050308
  3. AZATHIOPRIN [Concomitant]
     Indication: CROHN^S DISEASE
     Dates: start: 20050222
  4. AZATHIOPRIN [Concomitant]
     Indication: CROHN^S DISEASE
     Dates: start: 1995, end: 200411
  5. METHYLPREDNISOLON [Concomitant]
     Indication: CROHN^S DISEASE
     Dates: start: 200310
  6. MESALAZIN [Concomitant]
     Indication: CROHN^S DISEASE
     Dates: start: 200403
  7. ONDANSETRON [Concomitant]
     Indication: NAUSEA
     Dates: start: 200411
  8. BUPRENORPHIN [Concomitant]
     Indication: BACK PAIN
     Route: 062
     Dates: start: 2002
  9. ESOMEPRAZOL [Concomitant]
     Indication: GASTROOESOPHAGEAL REFLUX DISEASE
     Dates: start: 200405

REACTIONS (2)
  - Headache [Recovered/Resolved]
  - Vertigo [Recovered/Resolved]
